FAERS Safety Report 7864955-5 (Version None)
Quarter: 2011Q4

REPORT INFORMATION
  Report Type: 
  Country: None (occurrence: None)
  Receive Date: 20111028
  Receipt Date: 20111019
  Transmission Date: 20120403
  Serious: Yes (Hospitalization, Other)
  Sender: FDA-Public Use
  Company Number: US-BAYER-201012556NA

PATIENT
  Age: 18 Year
  Sex: Female
  Weight: 90.5 kg

DRUGS (7)
  1. YASMIN [Suspect]
     Indication: PRODUCT USED FOR UNKNOWN INDICATION
     Dosage: 1  DF (DAILY DOSE), , ORAL
     Route: 048
  2. TORADOL [Concomitant]
  3. I.V. SOLUTIONS [Concomitant]
  4. YAZ [Suspect]
     Indication: PRODUCT USED FOR UNKNOWN INDICATION
     Dosage: 1 DF (DAILY DOSE), , ORAL
     Route: 048
  5. PHENERGAN HCL [Concomitant]
  6. DROSPIRENONE AND ETHINYL ESTRADIOL [Suspect]
     Indication: PRODUCT USED FOR UNKNOWN INDICATION
     Dosage: 1 DF (DAILY DOSE), , ORAL
     Route: 048
  7. IBUPROFEN [Concomitant]

REACTIONS (5)
  - EMOTIONAL DISTRESS [None]
  - CHOLECYSTITIS CHRONIC [None]
  - CHOLELITHIASIS [None]
  - GALLBLADDER INJURY [None]
  - CHOLECYSTITIS ACUTE [None]
